FAERS Safety Report 14180821 (Version 2)
Quarter: 2018Q1

REPORT INFORMATION
  Report Type: Spontaneous
  Country: JP (occurrence: JP)
  Receive Date: 20171110
  Receipt Date: 20180223
  Transmission Date: 20180508
  Serious: Yes (Life-Threatening, Hospitalization, Other)
  Sender: FDA-Public Use
  Company Number: JP-BAUSCH-BL-2017-030978

PATIENT
  Age: 21 Year
  Sex: Male

DRUGS (3)
  1. FAT EMULSION NOS [Suspect]
     Active Substance: EGG PHOSPHOLIPIDS\SAFFLOWER OIL\SOYBEAN OIL
     Indication: VENTRICULAR TACHYCARDIA
     Route: 042
  2. DIAZEPAM. [Suspect]
     Active Substance: DIAZEPAM
     Indication: VENTRICULAR TACHYCARDIA
     Route: 065
  3. MAGNESIUM [Suspect]
     Active Substance: MAGNESIUM
     Indication: VENTRICULAR TACHYCARDIA
     Route: 065

REACTIONS (1)
  - Drug ineffective [Unknown]
